FAERS Safety Report 7956467-5 (Version None)
Quarter: 2011Q4

REPORT INFORMATION
  Report Type: 
  Country: None (occurrence: None)
  Receive Date: 20111205
  Receipt Date: 20111130
  Transmission Date: 20120403
  Serious: Yes (Death, Hospitalization)
  Sender: FDA-Public Use
  Company Number: US-ASTELLAS-2011US007571

PATIENT
  Sex: Female

DRUGS (1)
  1. PROGRAF [Suspect]
     Indication: LIVER TRANSPLANT
     Dosage: 2 MG, BID
     Route: 048
     Dates: start: 20040101, end: 20110501

REACTIONS (9)
  - RENAL FAILURE ACUTE [None]
  - MENTAL STATUS CHANGES [None]
  - TRANSPLANT FAILURE [None]
  - HYPOTENSION [None]
  - RESPIRATORY FAILURE [None]
  - BACTERIAL TEST POSITIVE [None]
  - SEPTIC SHOCK [None]
  - HEPATITIS C [None]
  - CHRONIC HEPATIC FAILURE [None]
